FAERS Safety Report 18295950 (Version 1)
Quarter: 2020Q3

REPORT INFORMATION
  Report Type: Spontaneous
  Country: CA (occurrence: CA)
  Receive Date: 20200922
  Receipt Date: 20200922
  Transmission Date: 20201103
  Serious: Yes (Hospitalization)
  Sender: FDA-Public Use
  Company Number: CA-TEVA-2020-CA-1830234

PATIENT
  Age: 30 Year
  Sex: Male

DRUGS (15)
  1. SODIUM CHLORIDE. [Suspect]
     Active Substance: SODIUM CHLORIDE
  2. FOLIC ACID. [Concomitant]
     Active Substance: FOLIC ACID
  3. VINCRISTINE SULFATE. [Suspect]
     Active Substance: VINCRISTINE SULFATE
     Route: 065
  4. SENNOSIDES. [Concomitant]
     Active Substance: SENNOSIDES
  5. DOXORUBICIN HYDROCHLORIDE INJECTION [Suspect]
     Active Substance: DOXORUBICIN HYDROCHLORIDE
  6. ETOPOSIDE. [Suspect]
     Active Substance: ETOPOSIDE
     Route: 065
  7. CANDESARTAN. [Concomitant]
     Active Substance: CANDESARTAN
  8. BISOPROLOL [Concomitant]
     Active Substance: BISOPROLOL
  9. PANTOPRAZOLE [Concomitant]
     Active Substance: PANTOPRAZOLE
  10. VITAMIN C [Concomitant]
     Active Substance: ASCORBIC ACID
  11. METFORMIN [Concomitant]
     Active Substance: METFORMIN HYDROCHLORIDE
  12. APO?GLICLAZIDE MR [Concomitant]
     Active Substance: GLICLAZIDE
  13. ATORVASTATIN [Concomitant]
     Active Substance: ATORVASTATIN
  14. MULTIVITAMINE(S) [Concomitant]
     Active Substance: VITAMINS
  15. TINZAPARIN [Concomitant]
     Active Substance: TINZAPARIN

REACTIONS (2)
  - Ludwig angina [Recovered/Resolved]
  - Febrile neutropenia [Recovered/Resolved]
